FAERS Safety Report 16065439 (Version 1)
Quarter: 2019Q1

REPORT INFORMATION
  Report Type: Spontaneous
  Country: US (occurrence: US)
  Receive Date: 20190211
  Receipt Date: 20190211
  Transmission Date: 20190418
  Serious: No
  Sender: FDA-Public Use
  Company Number: None

PATIENT
  Age: 65 Year
  Sex: Female

DRUGS (2)
  1. LETROZOLE TAB 2.5MG [Suspect]
     Active Substance: LETROZOLE
     Route: 048
     Dates: start: 201602
  2. IBRANCE [Concomitant]
     Active Substance: PALBOCICLIB

REACTIONS (3)
  - Abdominal pain [None]
  - Dyspepsia [None]
  - Constipation [None]

NARRATIVE: CASE EVENT DATE: 20190211
